FAERS Safety Report 8386323-2 (Version None)
Quarter: 2012Q2

REPORT INFORMATION
  Report Type: 
  Country: None (occurrence: None)
  Receive Date: 20120525
  Receipt Date: 20120305
  Transmission Date: 20120825
  Serious: No
  Sender: FDA-Public Use
  Company Number: US-VERTEX PHARMACEUTICALS INC.-AE-2012-003205

PATIENT
  Sex: Male

DRUGS (1)
  1. KALYDECO [Suspect]
     Indication: CYSTIC FIBROSIS
     Route: 048
     Dates: start: 20120226

REACTIONS (4)
  - ABDOMINAL PAIN UPPER [None]
  - CYSTIC FIBROSIS [None]
  - DISEASE COMPLICATION [None]
  - ABDOMINAL DISTENSION [None]
